FAERS Safety Report 8243374-6 (Version None)
Quarter: 2012Q1

REPORT INFORMATION
  Report Type: 
  Country: None (occurrence: None)
  Receive Date: 20120329
  Receipt Date: 20120313
  Transmission Date: 20120608
  Serious: Yes (Life-Threatening)
  Sender: FDA-Public Use
  Company Number: US-ROCHE-1053660

PATIENT
  Sex: Male
  Weight: 84.444 kg

DRUGS (2)
  1. XELODA [Suspect]
     Indication: COLORECTAL CANCER METASTATIC
     Route: 048
     Dates: start: 20120220
  2. COUMADIN [Concomitant]
     Route: 048

REACTIONS (3)
  - CHROMATURIA [None]
  - DIARRHOEA [None]
  - EPISTAXIS [None]
